FAERS Safety Report 17001555 (Version 2)
Quarter: 2021Q1

REPORT INFORMATION
  Report Type: Report from Study
  Country: US (occurrence: US)
  Receive Date: 20191106
  Receipt Date: 20210128
  Transmission Date: 20210419
  Serious: Yes (Death)
  Sender: FDA-Public Use
  Company Number: US-PFIZER INC-2019473566

PATIENT

DRUGS (2)
  1. PACLITAXEL. [Suspect]
     Active Substance: PACLITAXEL
     Indication: SMALL CELL LUNG CANCER
     Dosage: 60 MG/M2, CYCLIC (ON DAYS 1, 8, AND 15), IN 28?DAY CYCLES
     Route: 042
  2. ALISERTIB [Suspect]
     Active Substance: ALISERTIB
     Indication: SMALL CELL LUNG CANCER
     Dosage: 40 MG, TWICE DAILY FOR 3 WEEKS ON DAYS 1?3, 8?10 AND 15?17), IN 28?DAY CYCLES
     Route: 048

REACTIONS (1)
  - Sepsis [Fatal]
